FAERS Safety Report 5295736-7 (Version None)
Quarter: 2007Q2

REPORT INFORMATION
  Report Type: 
  Country: None (occurrence: None)
  Receive Date: 20070413
  Receipt Date: 20070409
  Transmission Date: 20071010
  Serious: Yes (Death, Hospitalization)
  Sender: FDA-Public Use
  Company Number: 2005UW07050

PATIENT
  Age: 17166 Day
  Sex: Female
  Weight: 61 kg

DRUGS (2)
  1. IRESSA [Suspect]
     Indication: NON-SMALL CELL LUNG CANCER RECURRENT
     Dosage: DAY 1 + 2
     Route: 048
     Dates: start: 20050419
  2. DOCETAXEL [Suspect]
     Indication: NON-SMALL CELL LUNG CANCER RECURRENT
     Dosage: DAY 3
     Route: 042
     Dates: start: 20050421

REACTIONS (4)
  - FEBRILE NEUTROPENIA [None]
  - MULTI-ORGAN FAILURE [None]
  - PNEUMONIA [None]
  - SEPSIS [None]
